FAERS Safety Report 23509425 (Version 1)
Quarter: 2024Q1

REPORT INFORMATION
  Report Type: Other
  Country: US (occurrence: US)
  Receive Date: 20240210
  Receipt Date: 20240210
  Transmission Date: 20240410
  Serious: No
  Sender: FDA-Public Use
  Company Number: US-TRAVERE-2024TVT00033

PATIENT
  Sex: Male

DRUGS (4)
  1. FILSPARI [Suspect]
     Active Substance: SPARSENTAN
     Indication: Product used for unknown indication
     Dosage: TAKE 1 TABLET DAILY ON DAYS 1 THROUGH 14, THEN TAKE 2 TABLETS DAILY ON DAYS 15 THROUGH 30.
     Route: 048
  2. CARVEDILOL [Concomitant]
     Active Substance: CARVEDILOL
  3. CHLORTHALIDONE [Concomitant]
     Active Substance: CHLORTHALIDONE
  4. MYCOPHENOLIC ACID [Concomitant]
     Active Substance: MYCOPHENOLIC ACID

REACTIONS (1)
  - Product prescribing error [Unknown]
